FAERS Safety Report 19425035 (Version 1)
Quarter: 2021Q2

REPORT INFORMATION
  Report Type: Spontaneous
  Country: US (occurrence: US)
  Receive Date: 20210617
  Receipt Date: 20210617
  Transmission Date: 20210717
  Serious: Yes (Hospitalization)
  Sender: FDA-Public Use
  Company Number: US-ROCHE-2777308

PATIENT
  Age: 60 Year
  Sex: Female
  Weight: 93.52 kg

DRUGS (2)
  1. LISINOPRIL. [Suspect]
     Active Substance: LISINOPRIL
     Indication: HYPERTENSION
     Route: 065
  2. ACTEMRA [Suspect]
     Active Substance: TOCILIZUMAB
     Indication: RHEUMATOID ARTHRITIS
     Route: 042
     Dates: start: 201301, end: 201309

REACTIONS (14)
  - Adjacent segment degeneration [Unknown]
  - Oropharyngeal pain [Unknown]
  - Glucose tolerance impaired [Not Recovered/Not Resolved]
  - Anaphylactic reaction [Recovered/Resolved]
  - Vomiting [Unknown]
  - Myalgia [Unknown]
  - Spinal stenosis [Unknown]
  - Osteoporosis [Not Recovered/Not Resolved]
  - Muscle rupture [Unknown]
  - Sinus disorder [Unknown]
  - Hypothyroidism [Not Recovered/Not Resolved]
  - Dyspnoea [Unknown]
  - Arthralgia [Unknown]
  - Cholelithiasis [Unknown]

NARRATIVE: CASE EVENT DATE: 20170919
